FAERS Safety Report 16890377 (Version 1)
Quarter: 2019Q4

REPORT INFORMATION
  Report Type: Report from Study
  Country: US (occurrence: US)
  Receive Date: 20191007
  Receipt Date: 20191007
  Transmission Date: 20200122
  Serious: Yes (Hospitalization, Other)
  Sender: FDA-Public Use
  Company Number: US-MYLANLABS-2019M1091966

PATIENT
  Age: 58 Year
  Sex: Female

DRUGS (1)
  1. YUPELRI [Suspect]
     Active Substance: REVEFENACIN
     Indication: PRODUCT USED FOR UNKNOWN INDICATION
     Dosage: 175MCG/3ML

REACTIONS (4)
  - Unresponsive to stimuli [Unknown]
  - Asthenia [Unknown]
  - Decubitus ulcer [Unknown]
  - Pneumonia [Unknown]
